FAERS Safety Report 23942025 (Version 3)
Quarter: 2024Q2

REPORT INFORMATION
  Report Type: Spontaneous
  Country: US (occurrence: US)
  Receive Date: 20240605
  Receipt Date: 20240624
  Transmission Date: 20240716
  Serious: No
  Sender: FDA-Public Use
  Company Number: US-SA-2024SA164110

PATIENT
  Age: 72 Year
  Sex: Female

DRUGS (14)
  1. DUPIXENT [Suspect]
     Active Substance: DUPILUMAB
     Indication: Neurodermatitis
     Dosage: 300 MG, QOW
     Route: 058
     Dates: start: 20240517
  2. DUPIXENT [Suspect]
     Active Substance: DUPILUMAB
     Indication: Neuralgia
  3. BUSPIRONE HYDROCHLORIDE [Concomitant]
     Active Substance: BUSPIRONE HYDROCHLORIDE
  4. CARVEDILOL [Concomitant]
     Active Substance: CARVEDILOL
  5. CLONIDINE [Concomitant]
     Active Substance: CLONIDINE
     Dosage: PTW 0.3MG/24HR
  6. DULOXETINE [Concomitant]
     Active Substance: DULOXETINE
  7. EZETIMIBE [Concomitant]
     Active Substance: EZETIMIBE
  8. FARXIGA [Concomitant]
     Active Substance: DAPAGLIFLOZIN PROPANEDIOL
  9. FISH OIL [Concomitant]
     Active Substance: FISH OIL
  10. FUROSEMIDE [Concomitant]
     Active Substance: FUROSEMIDE
  11. KLOR-CON M10 [Concomitant]
     Active Substance: POTASSIUM CHLORIDE
  12. VITAMINS NOS [Concomitant]
     Active Substance: VITAMINS
  13. OMEPRAZOLE [Concomitant]
     Active Substance: DONEPEZIL HYDROCHLORIDE\OMEPRAZOLE\OMEPRAZOLE MAGNESIUM
  14. SPIRONOLACTONE [Concomitant]
     Active Substance: SPIRONOLACTONE

REACTIONS (4)
  - Confusional state [Unknown]
  - Fatigue [Unknown]
  - Product use in unapproved indication [Unknown]
  - Inappropriate schedule of product administration [Unknown]

NARRATIVE: CASE EVENT DATE: 20240101
